FAERS Safety Report 9693147 (Version 1)
Quarter: 2013Q4

REPORT INFORMATION
  Report Type: Spontaneous
  Country: CH (occurrence: None)
  Receive Date: 20131114
  Receipt Date: 20131114
  Transmission Date: 20140711
  Serious: Yes (Hospitalization)
  Sender: FDA-Public Use
  Company Number: 2007423

PATIENT
  Age: 55 Year
  Sex: Female

DRUGS (1)
  1. (DEXMEDETOMIDINE HYDROCHLORIDE) [Suspect]
     Indication: PRODUCT USED FOR UNKNOWN INDICATION
     Dosage: UNKNOWN,UNKNOWN, UNKNOWN

REACTIONS (1)
  - Cardiogenic shock [None]
